FAERS Safety Report 5103813-6 (Version None)
Quarter: 2006Q3

REPORT INFORMATION
  Report Type: 
  Country: None (occurrence: None)
  Receive Date: 20060911
  Receipt Date: 20060828
  Transmission Date: 20061208
  Serious: Yes (Hospitalization)
  Sender: FDA-Public Use
  Company Number: 2006105899

PATIENT
  Sex: Female

DRUGS (3)
  1. LYRICA [Suspect]
     Indication: DIABETIC NEUROPATHY
     Dosage: 600 MG DAILY ORAL
     Route: 048
     Dates: start: 20060701
  2. VENLAFAXINE HCL [Suspect]
     Indication: DEPRESSION
     Dosage: 150 MG DAILY ORAL
     Route: 048
     Dates: start: 20060816
  3. VENLAFAXINE HCL [Suspect]
     Indication: NEURALGIA
     Dosage: 150 MG DAILY ORAL
     Route: 048
     Dates: start: 20060816

REACTIONS (4)
  - DEPRESSION [None]
  - DYSAESTHESIA [None]
  - INSOMNIA [None]
  - NEURALGIA [None]
